FAERS Safety Report 6593818-0 (Version None)
Quarter: 2010Q1

REPORT INFORMATION
  Report Type: 
  Country: None (occurrence: None)
  Receive Date: 20100212
  Receipt Date: 20100129
  Transmission Date: 20100710
  Serious: Yes (Congenital Anomaly)
  Sender: FDA-Public Use
  Company Number: B0629808A

PATIENT
  Sex: Male

DRUGS (4)
  1. LAMOTRIGINE [Suspect]
     Dosage: TRANSPLACENTARY
     Route: 064
  2. TOPIRAMATE [Suspect]
     Dosage: 800 MG PER DAY/ TRANSPLACENTARY
     Route: 064
  3. VIGABATRIN (FORMULATION UNKNOWN) (VIGABATRIN) (GENERIC) [Suspect]
     Dosage: TRANSPLACENTARY
     Route: 064
  4. CLOBAZAM (FORMULATION UNKNOWN) (CLOBAZAM) (GENERIC) [Suspect]
     Dosage: TRANSPLACENTARY
     Route: 064

REACTIONS (5)
  - CARDIAC MURMUR [None]
  - CONGENITAL HYDRONEPHROSIS [None]
  - DYSMORPHISM [None]
  - HIP DYSPLASIA [None]
  - MATERNAL DRUGS AFFECTING FOETUS [None]
